FAERS Safety Report 9757761 (Version 1)
Quarter: 2013Q4

REPORT INFORMATION
  Report Type: Spontaneous
  Country: US (occurrence: US)
  Receive Date: 20131216
  Receipt Date: 20131216
  Transmission Date: 20140711
  Serious: No
  Sender: FDA-Public Use
  Company Number: US-BIOGENIDEC-2013BI117410

PATIENT
  Age: 55 Year
  Sex: Female

DRUGS (8)
  1. AVONEX [Suspect]
     Indication: MULTIPLE SCLEROSIS
     Route: 030
     Dates: start: 19990201, end: 20081020
  2. AVONEX [Suspect]
     Indication: MULTIPLE SCLEROSIS
     Route: 030
     Dates: start: 20090508, end: 20100125
  3. AVONEX [Suspect]
     Indication: MULTIPLE SCLEROSIS
     Route: 030
     Dates: start: 20100511, end: 20120109
  4. AVONEX [Suspect]
     Indication: MULTIPLE SCLEROSIS
     Route: 030
     Dates: start: 20120518
  5. FIORICET [Concomitant]
     Indication: HEADACHE
     Route: 048
  6. FIORICET [Concomitant]
     Indication: NECK PAIN
     Route: 048
  7. EXCEDRIN [Concomitant]
     Indication: HEADACHE
     Route: 048
  8. EXCEDRIN [Concomitant]
     Indication: NECK PAIN
     Route: 048

REACTIONS (1)
  - Injection site bruising [Recovered/Resolved]
